FAERS Safety Report 6842077-X (Version None)
Quarter: 2010Q3

REPORT INFORMATION
  Report Type: 
  Country: None (occurrence: None)
  Receive Date: 20100709
  Receipt Date: 20100625
  Transmission Date: 20110219
  Serious: Yes (Other)
  Sender: FDA-Public Use
  Company Number: 2010MA000314

PATIENT

DRUGS (4)
  1. PHENOBARBITAL TAB [Suspect]
     Indication: EPILEPSY
     Dates: start: 20100531, end: 20100601
  2. MELATONIN [Concomitant]
  3. LANSOPRAZOLE [Concomitant]
  4. LEVOTHYROXINE SODIUM [Concomitant]

REACTIONS (4)
  - AGGRESSION [None]
  - ALCOHOL POISONING [None]
  - BALANCE DISORDER [None]
  - SCREAMING [None]
